FAERS Safety Report 6073982-2 (Version None)
Quarter: 2009Q1

REPORT INFORMATION
  Report Type: 
  Country: None (occurrence: None)
  Receive Date: 20090209
  Receipt Date: 20090209
  Transmission Date: 20090719
  Serious: Yes (Other)
  Sender: FDA-Public Use
  Company Number: None

PATIENT
  Age: 60 Year
  Sex: Male
  Weight: 83.9154 kg

DRUGS (2)
  1. FOSINOPRIL [Suspect]
     Indication: HYPERTENSION
  2. DIOVAN [Suspect]

REACTIONS (2)
  - PAIN IN EXTREMITY [None]
  - PERIPHERAL COLDNESS [None]
